FAERS Safety Report 8345444-0 (Version None)
Quarter: 2012Q2

REPORT INFORMATION
  Report Type: 
  Country: None (occurrence: None)
  Receive Date: 20120508
  Receipt Date: 20120427
  Transmission Date: 20120825
  Serious: Yes (Other)
  Sender: FDA-Public Use
  Company Number: NL-BAXTER-2012BAX004206

PATIENT
  Sex: Female

DRUGS (3)
  1. KIOVIG [Suspect]
     Route: 065
     Dates: start: 20120426
  2. KIOVIG [Suspect]
     Route: 065
     Dates: start: 20120410
  3. KIOVIG [Suspect]
     Indication: POLYNEUROPATHY
     Route: 065
     Dates: start: 20101025

REACTIONS (2)
  - ASTHENIA [None]
  - ACUTE SINUSITIS [None]
